FAERS Safety Report 4415410-6 (Version None)
Quarter: 2004Q2

REPORT INFORMATION
  Report Type: 
  Country: None (occurrence: None)
  Receive Date: 20040621
  Receipt Date: 20031201
  Transmission Date: 20050107
  Serious: Yes (Death, Other)
  Sender: FDA-Public Use
  Company Number: USA-2003-0012051

PATIENT
  Age: 20 Year
  Sex: Male

DRUGS (4)
  1. OXYCONTIN [Suspect]
  2. HEROIN (DIAMORPHINE) [Suspect]
  3. COCAINE (COCAINE) [Suspect]
  4. ALPRAZOLAM [Suspect]

REACTIONS (3)
  - ACCIDENTAL OVERDOSE [None]
  - MULTIPLE DRUG OVERDOSE [None]
  - POLYSUBSTANCE ABUSE [None]
